FAERS Safety Report 5794194-3 (Version None)
Quarter: 2008Q2

REPORT INFORMATION
  Report Type: 
  Country: None (occurrence: None)
  Receive Date: 20080627
  Receipt Date: 20080616
  Transmission Date: 20081010
  Serious: Yes (Death, Other)
  Sender: FDA-Public Use
  Company Number: US-PFIZER INC-2008050913

PATIENT
  Sex: Male

DRUGS (13)
  1. DIFLUCAN [Suspect]
     Indication: PROPHYLAXIS
     Dosage: DAILY DOSE:2MG
     Route: 042
  2. INDOMETHACIN [Concomitant]
  3. DOPAMINE HCL [Concomitant]
  4. IBUROFEN [Concomitant]
  5. FERROUS SULFATE TAB [Concomitant]
  6. VANCOMYCIN [Concomitant]
  7. CUROSURF [Concomitant]
  8. ALBUTEROL [Concomitant]
  9. FUROSEMIDE [Concomitant]
  10. DOXAPRAM [Concomitant]
  11. AMINOPHYLLINE [Concomitant]
  12. LASIX [Concomitant]
  13. ACYCLOVIR SODIUM [Concomitant]

REACTIONS (6)
  - APNOEA [None]
  - CHOKING [None]
  - DERMATITIS [None]
  - METABOLIC SYNDROME [None]
  - RIB FRACTURE [None]
  - STAPHYLOCOCCAL SEPSIS [None]
